FAERS Safety Report 4555748-5 (Version None)
Quarter: 2005Q1

REPORT INFORMATION
  Report Type: 
  Country: None (occurrence: None)
  Receive Date: 20050119
  Receipt Date: 20050106
  Transmission Date: 20050727
  Serious: Yes (Hospitalization)
  Sender: FDA-Public Use
  Company Number: 200510090FR

PATIENT
  Age: 73 Year
  Sex: Female
  Weight: 50 kg

DRUGS (11)
  1. LASILIX [Suspect]
     Route: 048
     Dates: start: 20041212, end: 20041222
  2. COLCHICINE HOUDE [Suspect]
     Indication: ARTHROPATHY
     Route: 048
     Dates: start: 20041212, end: 20041222
  3. ZYLORIC [Suspect]
     Route: 048
     Dates: start: 20041217, end: 20041228
  4. FLECTOR [Suspect]
     Indication: ARTHROPATHY
     Route: 062
     Dates: start: 20041212, end: 20041228
  5. TAHOR [Suspect]
     Route: 048
     Dates: start: 20041215, end: 20041229
  6. LANTUS [Concomitant]
     Route: 058
     Dates: start: 20041213
  7. TRIATEC [Concomitant]
     Indication: ANGINA PECTORIS
     Route: 048
  8. MIXTARD HUMAN 70/30 [Concomitant]
     Indication: DIABETES MELLITUS
  9. INSULATARD NPH HUMAN [Concomitant]
     Indication: DIABETES MELLITUS
  10. KARDEGIC [Concomitant]
     Route: 048
  11. ACETAMINOPHEN [Concomitant]

REACTIONS (4)
  - FACE OEDEMA [None]
  - OEDEMA PERIPHERAL [None]
  - PYREXIA [None]
  - RASH PUSTULAR [None]
